FAERS Safety Report 5746916-5 (Version None)
Quarter: 2008Q2

REPORT INFORMATION
  Report Type: 
  Country: None (occurrence: None)
  Receive Date: 20080520
  Receipt Date: 20080520
  Transmission Date: 20081010
  Serious: No
  Sender: FDA-Public Use
  Company Number: None

PATIENT
  Sex: Female
  Weight: 75.7507 kg

DRUGS (2)
  1. ZYRTEC [Suspect]
     Indication: MULTIPLE ALLERGIES
     Dosage: 1  1 PER DAY PO
     Route: 048
     Dates: start: 20080427, end: 20080519
  2. ZYRTEC [Suspect]
     Indication: SEASONAL ALLERGY
     Dosage: 1  1 PER DAY PO
     Route: 048
     Dates: start: 20080427, end: 20080519

REACTIONS (2)
  - DRUG INEFFECTIVE [None]
  - PHARMACEUTICAL PRODUCT COMPLAINT [None]
